FAERS Safety Report 16296173 (Version 3)
Quarter: 2019Q3

REPORT INFORMATION
  Report Type: Spontaneous
  Country: US (occurrence: US)
  Receive Date: 20190510
  Receipt Date: 20190705
  Transmission Date: 20191004
  Serious: Yes (Other)
  Sender: FDA-Public Use
  Company Number: US-PFIZER INC-2019194443

PATIENT
  Age: 50 Year
  Sex: Male
  Weight: 122.47 kg

DRUGS (1)
  1. VIAGRA [Suspect]
     Active Substance: SILDENAFIL CITRATE
     Indication: ERECTILE DYSFUNCTION
     Dosage: 100 MG, 2X/WEEK
     Route: 048
     Dates: start: 201801

REACTIONS (10)
  - Haemorrhoids [Unknown]
  - Tremor [Unknown]
  - Tumour marker increased [Unknown]
  - Erectile dysfunction [Unknown]
  - Condition aggravated [Unknown]
  - Product dispensing error [Unknown]
  - Therapeutic response unexpected [Unknown]
  - Pre-existing condition improved [Unknown]
  - Haematochezia [Unknown]
  - Circumstance or information capable of leading to medication error [Unknown]
